FAERS Safety Report 11250871 (Version 3)
Quarter: 2015Q4

REPORT INFORMATION
  Report Type: Spontaneous
  Country: CH (occurrence: CH)
  Receive Date: 20150708
  Receipt Date: 20151001
  Transmission Date: 20160304
  Serious: Yes (Hospitalization, Disabling)
  Sender: FDA-Public Use
  Company Number: CH-ENDO PHARMACEUTICALS INC.-2015-001689

PATIENT
  Age: 73 Year
  Sex: Male
  Weight: 75 kg

DRUGS (5)
  1. XIAPEX [Suspect]
     Active Substance: COLLAGENASE CLOSTRIDIUM HISTOLYTICUM
     Indication: DUPUYTREN^S CONTRACTURE
     Route: 065
     Dates: start: 20150324, end: 20150324
  2. COAPROVEL [Concomitant]
     Active Substance: HYDROCHLOROTHIAZIDE\IRBESARTAN
     Indication: PRODUCT USED FOR UNKNOWN INDICATION
     Route: 048
  3. DUODART [Concomitant]
     Active Substance: DUTASTERIDE\TAMSULOSIN
     Indication: PRODUCT USED FOR UNKNOWN INDICATION
     Route: 048
  4. SYMBICORT [Concomitant]
     Active Substance: BUDESONIDE\FORMOTEROL FUMARATE DIHYDRATE
     Indication: PRODUCT USED FOR UNKNOWN INDICATION
     Route: 055
  5. VI-DE 3 [Concomitant]
     Active Substance: CHOLECALCIFEROL
     Indication: PRODUCT USED FOR UNKNOWN INDICATION
     Dosage: 12 DROPS
     Route: 065

REACTIONS (8)
  - Aplastic anaemia [Not Recovered/Not Resolved]
  - Laryngitis [Unknown]
  - Drug administration error [Recovered/Resolved]
  - Asthma [Recovered/Resolved]
  - Mouth haemorrhage [Recovered/Resolved]
  - Incision site haemorrhage [Unknown]
  - Fatigue [Unknown]
  - Melanocytic naevus [Unknown]

NARRATIVE: CASE EVENT DATE: 20150324
